FAERS Safety Report 9684805 (Version 2)
Quarter: 2013Q4

REPORT INFORMATION
  Report Type: Report from Study
  Country: BR (occurrence: BR)
  Receive Date: 20131112
  Receipt Date: 20131112
  Transmission Date: 20140711
  Serious: Yes (Hospitalization, Other)
  Sender: FDA-Public Use
  Company Number: PHHY2013BR069732

PATIENT
  Age: 83 Year
  Sex: Male
  Weight: 58 kg

DRUGS (3)
  1. GALVUS MET [Suspect]
     Indication: DIABETES MELLITUS
     Dosage: 2 DF (850/50 MG), DAILY
     Route: 048
  2. DIOVAN [Suspect]
     Indication: HYPERTENSION
     Dosage: 1 DF, IN THE MORNING
  3. ENALAPRIL [Suspect]
     Indication: BLOOD PRESSURE MANAGEMENT
     Dosage: UNK UKN, UNK

REACTIONS (13)
  - Cerebrovascular accident [Recovering/Resolving]
  - Abasia [Recovering/Resolving]
  - Muscular weakness [Recovering/Resolving]
  - Movement disorder [Recovering/Resolving]
  - Anal inflammation [Recovering/Resolving]
  - Anal fistula [Unknown]
  - Blood glucose increased [Recovered/Resolved]
  - Cardiac disorder [Unknown]
  - Coagulopathy [Unknown]
  - Gastric disorder [Unknown]
  - Memory impairment [Recovered/Resolved]
  - Pollakiuria [Not Recovered/Not Resolved]
  - Weight increased [Recovered/Resolved]
